FAERS Safety Report 21618135 (Version 2)
Quarter: 2024Q2

REPORT INFORMATION
  Report Type: Report from Study
  Country: US (occurrence: US)
  Receive Date: 20221119
  Receipt Date: 20240411
  Transmission Date: 20240716
  Serious: Yes (Other)
  Sender: FDA-Public Use
  Company Number: US-ABBVIE-4206328

PATIENT
  Sex: Male

DRUGS (1)
  1. IMBRUVICA [Suspect]
     Active Substance: IBRUTINIB
     Indication: Chronic lymphocytic leukaemia
     Route: 048

REACTIONS (6)
  - Intestinal obstruction [Unknown]
  - Hernia [Unknown]
  - Nausea [Unknown]
  - Renal impairment [Unknown]
  - Feeling hot [Unknown]
  - Hyperhidrosis [Unknown]
